FAERS Safety Report 20632272 (Version 1)
Quarter: 2022Q1

REPORT INFORMATION
  Report Type: Spontaneous
  Country: US (occurrence: None)
  Receive Date: 20220324
  Receipt Date: 20220324
  Transmission Date: 20220423
  Serious: No
  Sender: FDA-Public Use
  Company Number: 2022A117481

PATIENT
  Age: 782 Month
  Sex: Female
  Weight: 99.8 kg

DRUGS (1)
  1. TAGRISSO [Suspect]
     Active Substance: OSIMERTINIB
     Indication: Lung carcinoma cell type unspecified stage IV
     Route: 048
     Dates: start: 202011

REACTIONS (7)
  - Nail injury [Unknown]
  - Body height decreased [Unknown]
  - Nail bed bleeding [Unknown]
  - Nail avulsion [Unknown]
  - Nail discolouration [Unknown]
  - Nail disorder [Unknown]
  - Nail bed disorder [Unknown]

NARRATIVE: CASE EVENT DATE: 20211101
